FAERS Safety Report 6269749-2 (Version None)
Quarter: 2009Q3

REPORT INFORMATION
  Report Type: 
  Country: None (occurrence: None)
  Receive Date: 20090716
  Receipt Date: 20090708
  Transmission Date: 20100115
  Serious: Yes (Other)
  Sender: FDA-Public Use
  Company Number: US-ASTRAZENECA-2009UW18945

PATIENT
  Age: 71 Year
  Sex: Female
  Weight: 77.1 kg

DRUGS (9)
  1. NEXIUM [Suspect]
     Route: 048
  2. PRAVASTATIN [Concomitant]
  3. AVAPRO [Concomitant]
  4. ZETIA [Concomitant]
  5. PLAVIX [Concomitant]
  6. PREMPRO [Concomitant]
  7. ASPIRIN [Concomitant]
  8. FLOVENT [Concomitant]
  9. SINGULAIR [Concomitant]

REACTIONS (4)
  - INTERVERTEBRAL DISC OPERATION [None]
  - NAUSEA [None]
  - OEDEMA PERIPHERAL [None]
  - THIRST [None]
